FAERS Safety Report 8285983-4 (Version None)
Quarter: 2012Q2

REPORT INFORMATION
  Report Type: 
  Country: None (occurrence: None)
  Receive Date: 20120416
  Receipt Date: 20120406
  Transmission Date: 20120825
  Serious: Yes (Hospitalization, Other)
  Sender: FDA-Public Use
  Company Number: PE-BRISTOL-MYERS SQUIBB COMPANY-15983224

PATIENT
  Age: 74 Year
  Sex: Male

DRUGS (6)
  1. PLACEBO [Suspect]
     Indication: TYPE 2 DIABETES MELLITUS
     Dosage: INTERRUPTED ON 13AUG2011,RESTAT ON 29AUG11,INTER ON 18NOV11
     Dates: start: 20100903
  2. BLINDED: SAXAGLIPTIN [Suspect]
     Indication: TYPE 2 DIABETES MELLITUS
     Dosage: INTERRUPTED ON 13AUG2011,RESTAT ON 29AUG11,INTER ON 18NOV11 1DF=2.5MG OR 5MG
     Dates: start: 20100903
  3. METFORMIN HCL [Suspect]
     Indication: DIABETES MELLITUS
     Dates: end: 20100923
  4. ASPIRIN [Concomitant]
     Dosage: ALSO TAKEN ON 02SEP10, 22MAR11.
     Dates: start: 20101123
  5. ALLOPURINOL [Concomitant]
     Indication: HYPERURICAEMIA
     Route: 048
  6. GLIMEPIRIDE [Suspect]
     Indication: DIABETES MELLITUS
     Dosage: END DATE 01FEB11 2 MG.4 MG: 02FEB11-16AUG11.16AUG11-UNK
     Dates: start: 20110202

REACTIONS (2)
  - DEEP VEIN THROMBOSIS [None]
  - OESOPHAGEAL CANDIDIASIS [None]
